FAERS Safety Report 4889725-1 (Version None)
Quarter: 2006Q1

REPORT INFORMATION
  Report Type: 
  Country: None (occurrence: None)
  Receive Date: 20060124
  Receipt Date: 20050317
  Transmission Date: 20060701
  Serious: Yes (Hospitalization, Disabling)
  Sender: FDA-Public Use
  Company Number: US-MERCK-0503USA03427

PATIENT
  Age: 34 Year
  Sex: Female
  Weight: 65 kg

DRUGS (5)
  1. VIOXX [Suspect]
     Indication: PAIN
     Route: 048
     Dates: start: 20000101, end: 20040101
  2. DEPO-PROVERA [Concomitant]
     Route: 065
  3. INSULIN [Concomitant]
     Route: 065
  4. KEFLEX [Concomitant]
     Route: 065
  5. COUMADIN [Concomitant]
     Route: 065

REACTIONS (10)
  - ABDOMINAL PAIN [None]
  - BACK PAIN [None]
  - CARDIOVASCULAR DISORDER [None]
  - CHEST PAIN [None]
  - DEEP VEIN THROMBOSIS [None]
  - DIABETIC NEUROPATHY [None]
  - HYPERLIPIDAEMIA [None]
  - LIMB INJURY [None]
  - PAIN IN EXTREMITY [None]
  - VAGINAL INFECTION [None]
